FAERS Safety Report 4699351-5 (Version None)
Quarter: 2005Q2

REPORT INFORMATION
  Report Type: 
  Country: None (occurrence: None)
  Receive Date: 20050624
  Receipt Date: 20050614
  Transmission Date: 20051028
  Serious: Yes (Other)
  Sender: FDA-Public Use
  Company Number: US-SANOFI-SYNTHELABO-A03200501789

PATIENT
  Age: 74 Year
  Sex: Male

DRUGS (3)
  1. PLAVIX [Suspect]
     Indication: MYOCARDIAL INFARCTION
     Route: 048
     Dates: start: 20041201
  2. ASPIRIN [Concomitant]
     Dosage: UNK
     Route: 048
  3. COZAAR [Concomitant]
     Dosage: UNK
     Route: 048

REACTIONS (1)
  - ANGIOPATHY [None]
